FAERS Safety Report 8756692 (Version 1)
Quarter: 2012Q4

REPORT INFORMATION
  Report Type: 
  Country: FR (occurrence: FR)
  Receive Date: 20120828
  Receipt Date: 20120828
  Transmission Date: 20130627
  Serious: Yes (Hospitalization)
  Sender: FDA-Public Use
  Company Number: PHHY2012FR073851

PATIENT
  Sex: Female
  Weight: 59 kg

DRUGS (2)
  1. ZOMETA [Suspect]
  2. RADIOTHERAPY [Concomitant]
     Indication: BONE PAIN
     Dates: start: 20120411, end: 20120420

REACTIONS (5)
  - Neoplasm recurrence [Not Recovered/Not Resolved]
  - Pulmonary mass [Not Recovered/Not Resolved]
  - Pulmonary mass [Not Recovered/Not Resolved]
  - Renal mass [Not Recovered/Not Resolved]
  - Metastases to bone [Not Recovered/Not Resolved]
